FAERS Safety Report 4936901-5 (Version None)
Quarter: 2006Q1

REPORT INFORMATION
  Report Type: 
  Country: None (occurrence: None)
  Receive Date: 20060302
  Receipt Date: 20060215
  Transmission Date: 20060701
  Serious: Yes (Life-Threatening, Hospitalization)
  Sender: FDA-Public Use
  Company Number: JP_041004698

PATIENT
  Age: 68 Year
  Sex: Male

DRUGS (7)
  1. ZYPREXA [Suspect]
     Indication: MENTAL DISORDER
     Dosage: 10 MG, DAILY (1/D), ORAL
     Route: 048
     Dates: start: 20040518, end: 20040729
  2. DEPAKENE [Concomitant]
  3. LIMAS (LITHIUM CARBONATE) [Concomitant]
  4. FUROSEMIDE [Concomitant]
  5. MAGNESIUM OXIDE (MAGNESIUM OXIDE) [Concomitant]
  6. LENDORM [Concomitant]
  7. MUCODYNE (CARBOCISTEINE) [Concomitant]

REACTIONS (6)
  - ASPARTATE AMINOTRANSFERASE INCREASED [None]
  - BLOOD LACTATE DEHYDROGENASE INCREASED [None]
  - CYTOMEGALOVIRUS INFECTION [None]
  - DRUG HYPERSENSITIVITY [None]
  - PHOTOSENSITIVITY REACTION [None]
  - RESTLESSNESS [None]
